FAERS Safety Report 24804248 (Version 1)
Quarter: 2025Q1

REPORT INFORMATION
  Report Type: Spontaneous
  Country: US (occurrence: None)
  Receive Date: 20250102
  Receipt Date: 20250102
  Transmission Date: 20250409
  Serious: Yes (Death)
  Sender: FDA-CTU
  Company Number: None

PATIENT
  Age: 76 Year
  Sex: Male

DRUGS (2)
  1. DEFERASIROX [Suspect]
     Active Substance: DEFERASIROX
     Indication: Iron overload
     Dosage: FREQUENCY : DAILY;?
     Route: 048
     Dates: start: 20240318, end: 20241108
  2. DEFERASIROX [Suspect]
     Active Substance: DEFERASIROX
     Indication: Iron overload

REACTIONS (3)
  - Eye infection [None]
  - Central nervous system infection [None]
  - Disease complication [None]

NARRATIVE: CASE EVENT DATE: 20241210
